FAERS Safety Report 13464371 (Version 1)
Quarter: 2017Q2

REPORT INFORMATION
  Report Type: Spontaneous
  Country: US (occurrence: US)
  Receive Date: 20170420
  Receipt Date: 20170420
  Transmission Date: 20170830
  Serious: Yes (Other)
  Sender: FDA-Public Use
  Company Number: US-ROCHE-722262

PATIENT
  Age: 32 Year
  Sex: Female
  Weight: 59 kg

DRUGS (4)
  1. ACCUTANE [Suspect]
     Active Substance: ISOTRETINOIN
     Indication: ACNE
     Route: 065
     Dates: start: 199707, end: 199806
  2. ACCUTANE [Suspect]
     Active Substance: ISOTRETINOIN
     Route: 065
     Dates: start: 200209, end: 20050914
  3. CLARITIN [Concomitant]
     Active Substance: LORATADINE
     Route: 065
  4. ACCUTANE [Suspect]
     Active Substance: ISOTRETINOIN
     Route: 065
     Dates: start: 199908, end: 200008

REACTIONS (9)
  - Inflammatory bowel disease [Unknown]
  - Dermal cyst [Unknown]
  - Enteritis [Unknown]
  - Eczema [Unknown]
  - Colitis [Unknown]
  - Gastrointestinal injury [Unknown]
  - Anaemia [Unknown]
  - Crohn^s disease [Unknown]
  - Seborrhoeic dermatitis [Unknown]

NARRATIVE: CASE EVENT DATE: 19971023
